FAERS Safety Report 13628440 (Version 1)
Quarter: 2017Q2

REPORT INFORMATION
  Report Type: Spontaneous
  Country: US (occurrence: US)
  Receive Date: 20170607
  Receipt Date: 20170607
  Transmission Date: 20170830
  Serious: No
  Sender: FDA-Public Use
  Company Number: US-TARO-2016TAR00776

PATIENT
  Age: 24 Year
  Sex: Male
  Weight: 95.24 kg

DRUGS (3)
  1. CHILDRENS CETIRIZINE HYDROCHLORIDE SUGAR FREE GRAPE [Suspect]
     Active Substance: CETIRIZINE HYDROCHLORIDE
     Indication: MULTIPLE ALLERGIES
     Dosage: 10 ML, 1X/DAY
     Route: 048
     Dates: start: 2006
  2. ZOLOFT (TAKES GENERIC BRAND) [Concomitant]
  3. ALBUTEROL. [Concomitant]
     Active Substance: ALBUTEROL
     Dosage: UNK, AS NEEDED

REACTIONS (4)
  - Cough [Recovered/Resolved]
  - Feeling abnormal [Recovered/Resolved]
  - Accidental overdose [Recovered/Resolved]
  - Asthma [Recovered/Resolved]

NARRATIVE: CASE EVENT DATE: 20160913
